FAERS Safety Report 12983988 (Version 1)
Quarter: 2016Q4

REPORT INFORMATION
  Report Type: Report from Study
  Country: US (occurrence: US)
  Receive Date: 20161129
  Receipt Date: 20161129
  Transmission Date: 20170207
  Serious: Yes (Hospitalization)
  Sender: FDA-Public Use
  Company Number: US-ASTRAZENECA-2016SE11221

PATIENT
  Age: 23580 Day
  Sex: Female
  Weight: 75.8 kg

DRUGS (7)
  1. OTHER MEDICATIONS [Concomitant]
     Active Substance: UNSPECIFIED INGREDIENT
     Indication: ARTHRITIS
  2. OTHER MEDICATIONS [Concomitant]
     Active Substance: UNSPECIFIED INGREDIENT
     Indication: DYSPNOEA
  3. TUDORZA PRESSAIR [Suspect]
     Active Substance: ACLIDINIUM BROMIDE
     Indication: CHRONIC OBSTRUCTIVE PULMONARY DISEASE
     Dosage: 400 MCG, ONE DEEP INHALATION TWICE A DAY
     Route: 055
     Dates: start: 2013
  4. TUDORZA PRESSAIR [Suspect]
     Active Substance: ACLIDINIUM BROMIDE
     Indication: PULMONARY FIBROSIS
     Dosage: 400 MCG, ONE DEEP INHALATION TWICE A DAY
     Route: 055
     Dates: start: 2013
  5. PREVACID [Concomitant]
     Active Substance: LANSOPRAZOLE
     Indication: GASTROOESOPHAGEAL REFLUX DISEASE
  6. MULTIVITAMINS [Concomitant]
     Active Substance: VITAMINS
  7. TUDORZA PRESSAIR [Suspect]
     Active Substance: ACLIDINIUM BROMIDE
     Indication: ALLERGIC BRONCHITIS
     Dosage: 400 MCG, ONE DEEP INHALATION TWICE A DAY
     Route: 055
     Dates: start: 2013

REACTIONS (5)
  - Fall [Unknown]
  - Hip fracture [Recovering/Resolving]
  - Product quality issue [Unknown]
  - Intentional product use issue [Unknown]
  - Allergic bronchitis [Unknown]

NARRATIVE: CASE EVENT DATE: 20150808
